FAERS Safety Report 14631449 (Version 1)
Quarter: 2018Q1

REPORT INFORMATION
  Report Type: Spontaneous
  Country: CN (occurrence: CN)
  Receive Date: 20180313
  Receipt Date: 20180313
  Transmission Date: 20180509
  Serious: Yes (Other)
  Sender: FDA-Public Use
  Company Number: CN-JNJFOC-20180307334

PATIENT

DRUGS (2)
  1. RISPERIDONE. [Suspect]
     Active Substance: RISPERIDONE
     Indication: SCHIZOPHRENIA
     Route: 065
  2. RISPERIDONE. [Suspect]
     Active Substance: RISPERIDONE
     Indication: SCHIZOPHRENIA
     Route: 065

REACTIONS (38)
  - Rash [Unknown]
  - Weight increased [Unknown]
  - Panic disorder [Unknown]
  - Constipation [Unknown]
  - Anxiety [Unknown]
  - Pyrexia [Unknown]
  - Fatigue [Unknown]
  - Urinary retention [Unknown]
  - Hepatic function abnormal [Unknown]
  - Abnormal behaviour [Unknown]
  - Breast hyperplasia [Unknown]
  - Extrapyramidal disorder [Unknown]
  - Headache [Unknown]
  - Dizziness [Unknown]
  - Nausea [Unknown]
  - Galactorrhoea [Unknown]
  - Bipolar I disorder [Unknown]
  - Bradycardia [Unknown]
  - Tachycardia [Unknown]
  - Abdominal pain [Unknown]
  - Rhinitis [Unknown]
  - Menstrual disorder [Unknown]
  - Pruritus [Unknown]
  - Electrocardiogram abnormal [Unknown]
  - Dry mouth [Unknown]
  - Dysuria [Unknown]
  - Somnolence [Unknown]
  - Nasal obstruction [Unknown]
  - Insomnia [Unknown]
  - Orthostatic hypotension [Unknown]
  - Blood prolactin increased [Unknown]
  - Extrasystoles [Unknown]
  - Vision blurred [Unknown]
  - Vomiting [Unknown]
  - Pollakiuria [Unknown]
  - Agitation [Unknown]
  - Amenorrhoea [Unknown]
  - Oedema [Unknown]
